FAERS Safety Report 6419946-8 (Version None)
Quarter: 2009Q4

REPORT INFORMATION
  Report Type: 
  Country: None (occurrence: None)
  Receive Date: 20091029
  Receipt Date: 20091028
  Transmission Date: 20100525
  Serious: Yes (Hospitalization, Other)
  Sender: FDA-Public Use
  Company Number: IT-BRISTOL-MYERS SQUIBB COMPANY-14776934

PATIENT
  Age: 72 Year
  Sex: Male

DRUGS (6)
  1. COUMADIN [Suspect]
     Indication: AORTIC VALVE REPLACEMENT
     Route: 048
     Dates: start: 20081107, end: 20090831
  2. INDOXEN [Concomitant]
     Route: 048
  3. LANSOPRAZOLE [Concomitant]
     Route: 048
  4. TAMSULOSIN [Concomitant]
     Route: 048
  5. OXYCODONE HCL AND ACETAMINOPHEN [Concomitant]
     Route: 048
  6. CO-EFFERALAGAN [Concomitant]
     Route: 048

REACTIONS (2)
  - HEAD INJURY [None]
  - SUBDURAL HAEMATOMA [None]
